FAERS Safety Report 4284702-6 (Version None)
Quarter: 2004Q1

REPORT INFORMATION
  Report Type: 
  Country: None (occurrence: None)
  Receive Date: 20040130
  Receipt Date: 20040119
  Transmission Date: 20041129
  Serious: Yes (Other)
  Sender: FDA-Public Use
  Company Number: NSADSS2002046289

PATIENT
  Age: 49 Year
  Sex: Male

DRUGS (1)
  1. LEVOFLOXACIN [Suspect]
     Indication: ACUTE SINUSITIS
     Dosage: 1 G, ORAL
     Route: 048
     Dates: start: 20021030, end: 20021031

REACTIONS (6)
  - BLOOD FIBRINOGEN INCREASED [None]
  - CREATININE RENAL CLEARANCE [None]
  - DIFFICULTY IN WALKING [None]
  - MUSCLE HAEMORRHAGE [None]
  - MYALGIA [None]
  - MYOPATHY [None]
